FAERS Safety Report 6670970-X (Version None)
Quarter: 2010Q2

REPORT INFORMATION
  Report Type: 
  Country: None (occurrence: None)
  Receive Date: 20100406
  Receipt Date: 20100406
  Transmission Date: 20101027
  Serious: Yes (Life-Threatening)
  Sender: FDA-Public Use
  Company Number: None

PATIENT
  Sex: Female
  Weight: 63.5036 kg

DRUGS (2)
  1. REGLAN [Suspect]
     Indication: GASTROOESOPHAGEAL REFLUX DISEASE
     Dates: start: 20080301, end: 20080601
  2. REGLAN [Suspect]
     Indication: HIATUS HERNIA
     Dates: start: 20080301, end: 20080601

REACTIONS (7)
  - ANXIETY [None]
  - CONVULSION [None]
  - DEPRESSION [None]
  - GAIT DISTURBANCE [None]
  - MUSCLE RIGIDITY [None]
  - MUSCLE SPASMS [None]
  - TENDON RUPTURE [None]
